FAERS Safety Report 21320660 (Version 1)
Quarter: 2022Q3

REPORT INFORMATION
  Report Type: Spontaneous
  Country: BR (occurrence: BR)
  Receive Date: 20220912
  Receipt Date: 20220912
  Transmission Date: 20221026
  Serious: Yes (Other)
  Sender: FDA-Public Use
  Company Number: BR-CELLTRION INC.-2022BR012751

PATIENT

DRUGS (5)
  1. INFLIXIMAB [Suspect]
     Active Substance: INFLIXIMAB
     Indication: Colitis ulcerative
     Dosage: 4 AMPOLES EVERY 30 DAYS
     Route: 042
  2. INFLIXIMAB [Suspect]
     Active Substance: INFLIXIMAB
     Dosage: 4 AMPOLES EVERY 30 DAYS/4 AMPOULES
     Route: 042
     Dates: start: 20220804
  3. INFLIXIMAB [Suspect]
     Active Substance: INFLIXIMAB
     Dosage: 4 AMPOLES EVERY 30 DAYS/4 AMPOULES
     Route: 042
     Dates: start: 20220905
  4. AZATHIOPRINE [Concomitant]
     Active Substance: AZATHIOPRINE
     Indication: Colitis ulcerative
     Dosage: 3 PILLS PER DAY, START: 2 YEARS AGO
     Route: 048
  5. MESALAMINE [Concomitant]
     Active Substance: MESALAMINE
     Indication: Colitis ulcerative
     Dosage: 4 PILLS PER DAY, START: 2 YEARS AGO
     Route: 048

REACTIONS (5)
  - Renal pain [Unknown]
  - Pain [Unknown]
  - Incorrect drug administration rate [Unknown]
  - Treatment delayed [Unknown]
  - Off label use [Unknown]
